FAERS Safety Report 7803272-6 (Version None)
Quarter: 2011Q4

REPORT INFORMATION
  Report Type: 
  Country: None (occurrence: None)
  Receive Date: 20111007
  Receipt Date: 20110929
  Transmission Date: 20120403
  Serious: Yes (Other)
  Sender: FDA-Public Use
  Company Number: PHHY2011BR87457

PATIENT
  Sex: Female

DRUGS (3)
  1. NYSTATIN [Suspect]
  2. SIMVASTATIN [Suspect]
     Dosage: 20 MG, UNK
  3. GALVUS MET [Suspect]
     Dosage: 50MG OF VILD AND 500MG OF METF

REACTIONS (4)
  - TONGUE DISORDER [None]
  - HYPERGLYCAEMIA [None]
  - APHONIA [None]
  - HYPERSENSITIVITY [None]
